FAERS Safety Report 13883964 (Version 4)
Quarter: 2017Q4

REPORT INFORMATION
  Report Type: Report from Study
  Country: US (occurrence: US)
  Receive Date: 20170820
  Receipt Date: 20171018
  Transmission Date: 20180320
  Serious: Yes (Hospitalization, Other)
  Sender: FDA-Public Use
  Company Number: PHEH2017US026214

PATIENT
  Age: 62 Year
  Sex: Male

DRUGS (2)
  1. COSENTYX [Suspect]
     Active Substance: SECUKINUMAB
     Indication: PSORIATIC ARTHROPATHY
     Dosage: 300 MG, QW
     Route: 058
     Dates: start: 20170201, end: 20170228
  2. REMICADE [Concomitant]
     Active Substance: INFLIXIMAB
     Indication: PRODUCT USED FOR UNKNOWN INDICATION
     Dosage: UNK, QW
     Route: 065

REACTIONS (14)
  - End stage renal disease [Unknown]
  - Diabetes mellitus [Unknown]
  - Dyspnoea [Unknown]
  - Psoriatic arthropathy [Unknown]
  - Cerebrovascular accident [Unknown]
  - Depression [Unknown]
  - Pancytopenia [Unknown]
  - Psoriasis [Unknown]
  - Central nervous system infection [Unknown]
  - Pain [Unknown]
  - Post-traumatic stress disorder [Unknown]
  - Chest pain [Unknown]
  - Cardiac failure congestive [Unknown]
  - Asthenia [Unknown]

NARRATIVE: CASE EVENT DATE: 20170201
